FAERS Safety Report 4513738-2 (Version None)
Quarter: 2004Q4

REPORT INFORMATION
  Report Type: 
  Country: None (occurrence: None)
  Receive Date: 20041130
  Receipt Date: 20040907
  Transmission Date: 20050328
  Serious: No
  Sender: FDA-Public Use
  Company Number: US-GLAXOSMITHKLINE-A0524763A

PATIENT
  Age: 40 Year
  Sex: Male

DRUGS (8)
  1. WELLBUTRIN XL [Suspect]
     Indication: PAIN
     Dosage: 150MG TWICE PER DAY
     Route: 048
  2. OXYCONTIN [Concomitant]
  3. PERCOCET [Concomitant]
  4. VALIUM [Concomitant]
  5. ALBUTEROL SULFATE [Concomitant]
  6. ALBUTEROL [Concomitant]
  7. LIPITOR [Concomitant]
  8. BENADRYL [Concomitant]

REACTIONS (1)
  - NON-CARDIAC CHEST PAIN [None]
